FAERS Safety Report 17523783 (Version 1)
Quarter: 2020Q1

REPORT INFORMATION
  Report Type: Spontaneous
  Country: US (occurrence: US)
  Receive Date: 20200311
  Receipt Date: 20200311
  Transmission Date: 20200409
  Serious: No
  Sender: FDA-Public Use
  Company Number: US-LUNDBECK-DKLU3013406

PATIENT
  Age: 81 Year
  Sex: Male

DRUGS (1)
  1. NORTHERA [Suspect]
     Active Substance: DROXIDOPA
     Indication: PRODUCT USED FOR UNKNOWN INDICATION
     Route: 048
     Dates: start: 20200219

REACTIONS (3)
  - Dry mouth [Unknown]
  - Hypertension [Unknown]
  - Dizziness [Unknown]

NARRATIVE: CASE EVENT DATE: 20200220
